FAERS Safety Report 12376437 (Version 1)
Quarter: 2016Q2

REPORT INFORMATION
  Report Type: Spontaneous
  Country: TR (occurrence: TR)
  Receive Date: 20160517
  Receipt Date: 20160517
  Transmission Date: 20160815
  Serious: Yes (Life-Threatening, Hospitalization)
  Sender: FDA-Public Use
  Company Number: TR-WATSON-2016-10051

PATIENT
  Age: 12 Year
  Sex: Male

DRUGS (2)
  1. CEFAZOLIN (UNKNOWN) [Suspect]
     Active Substance: CEFAZOLIN
     Indication: ARTHRITIS BACTERIAL
     Dosage: UNK
     Route: 065
  2. GENTAMICIN (UNKNOWN) [Suspect]
     Active Substance: GENTAMICIN
     Indication: ARTHRITIS BACTERIAL
     Dosage: UNK
     Route: 065

REACTIONS (1)
  - Drug reaction with eosinophilia and systemic symptoms [Recovered/Resolved]
